FAERS Safety Report 20719507 (Version 2)
Quarter: 2022Q4

REPORT INFORMATION
  Report Type: Spontaneous
  Country: US (occurrence: US)
  Receive Date: 20220418
  Receipt Date: 20221202
  Transmission Date: 20230113
  Serious: Yes (Other)
  Sender: FDA-Public Use
  Company Number: US-PFIZER INC-202101084873

PATIENT
  Age: 70 Year
  Sex: Female
  Weight: 70.31 kg

DRUGS (2)
  1. IBRANCE [Suspect]
     Active Substance: PALBOCICLIB
     Indication: Breast cancer metastatic
     Dosage: THREE WEEKS IN A ROW, ONE DAILY, THEN STOP FOR A WEEK, THEN RESTART
     Route: 048
     Dates: start: 2020
  2. LETROZOLE [Concomitant]
     Active Substance: LETROZOLE
     Indication: Breast cancer female
     Dosage: 2.5 MG, DAILY
     Dates: start: 2020

REACTIONS (8)
  - Nephrolithiasis [Unknown]
  - Trigger finger [Not Recovered/Not Resolved]
  - Pain in extremity [Not Recovered/Not Resolved]
  - Peripheral swelling [Unknown]
  - Vulvovaginal pruritus [Unknown]
  - Alopecia [Unknown]
  - Dry skin [Unknown]
  - Onychoclasis [Unknown]

NARRATIVE: CASE EVENT DATE: 20210501
